FAERS Safety Report 10866536 (Version 1)
Quarter: 2015Q1

REPORT INFORMATION
  Report Type: Spontaneous
  Country: US (occurrence: None)
  Receive Date: 20150220
  Receipt Date: 20150220
  Transmission Date: 20150721
  Serious: Yes (Disabling)
  Sender: FDA-Public Use
  Company Number: None

PATIENT
  Age: 57 Year

DRUGS (1)
  1. COLCRYS [Suspect]
     Active Substance: COLCHICINE
     Indication: GOUT
     Dosage: 1 PILL 2-3X PER DAY AS NEEDED
     Route: 048
     Dates: start: 20150102, end: 20150219

REACTIONS (3)
  - Drug ineffective [None]
  - Economic problem [None]
  - Product substitution issue [None]

NARRATIVE: CASE EVENT DATE: 20150219
